FAERS Safety Report 12331001 (Version 2)
Quarter: 2016Q2

REPORT INFORMATION
  Report Type: Spontaneous
  Country: GB (occurrence: GB)
  Receive Date: 20160504
  Receipt Date: 20160520
  Transmission Date: 20160815
  Serious: Yes (Other)
  Sender: FDA-Public Use
  Company Number: GB-CELGENEUS-GBR-2016045016

PATIENT
  Age: 70 Year
  Sex: Male
  Weight: 70.2 kg

DRUGS (1)
  1. REVLIMID [Suspect]
     Active Substance: LENALIDOMIDE
     Indication: PLASMA CELL MYELOMA
     Dosage: 10-15
     Route: 048
     Dates: start: 20130626

REACTIONS (2)
  - Diarrhoea [Recovered/Resolved]
  - Bile acid malabsorption [Recovered/Resolved]

NARRATIVE: CASE EVENT DATE: 20141117
